FAERS Safety Report 16922537 (Version 1)
Quarter: 2019Q4

REPORT INFORMATION
  Report Type: Spontaneous
  Country: US (occurrence: US)
  Receive Date: 20191016
  Receipt Date: 20191016
  Transmission Date: 20200122
  Serious: No
  Sender: FDA-Public Use
  Company Number: US-AMGEN-USASP2019165008

PATIENT
  Sex: Female

DRUGS (1)
  1. PROLIA [Suspect]
     Active Substance: DENOSUMAB
     Indication: OSTEOPOROSIS POSTMENOPAUSAL
     Dosage: UNK
     Route: 065
     Dates: start: 201804

REACTIONS (3)
  - Vulvovaginal pruritus [Unknown]
  - Skin disorder [Not Recovered/Not Resolved]
  - Vulvovaginal discomfort [Unknown]

NARRATIVE: CASE EVENT DATE: 2019
